FAERS Safety Report 20708379 (Version 1)
Quarter: 2022Q2

REPORT INFORMATION
  Report Type: Other
  Country: IT (occurrence: IT)
  Receive Date: 20220414
  Receipt Date: 20220414
  Transmission Date: 20220721
  Serious: Yes (Death, Other)
  Sender: FDA-Public Use
  Company Number: IT-GENENTECH-258848

PATIENT
  Age: 59 Year
  Sex: Female

DRUGS (2)
  1. RITUXAN [Suspect]
     Active Substance: RITUXIMAB
     Indication: Lymphoproliferative disorder
     Dosage: 375 MG/M2, Q28D
     Route: 042
  2. FLUDARABINE [Suspect]
     Active Substance: FLUDARABINE PHOSPHATE
     Indication: Lymphoproliferative disorder
     Dosage: 40MG/M2, QDX5DX28DC
     Route: 065

REACTIONS (3)
  - Progressive multifocal leukoencephalopathy [Fatal]
  - Leukopenia [Unknown]
  - Thrombocytopenia [Unknown]

NARRATIVE: CASE EVENT DATE: 20040101
